FAERS Safety Report 11865655 (Version 2)
Quarter: 2016Q4

REPORT INFORMATION
  Report Type: Spontaneous
  Country: US (occurrence: US)
  Receive Date: 20151223
  Receipt Date: 20161022
  Transmission Date: 20170206
  Serious: Yes (Life-Threatening, Other)
  Sender: FDA-Public Use
  Company Number: US-ABBVIE-15P-163-1526530-00

PATIENT
  Age: 70 Year

DRUGS (11)
  1. VIEKIRA PAK [Suspect]
     Active Substance: DASABUVIR\OMBITASVIR\PARITAPREVIR\RITONAVIR
     Indication: HEPATITIS C
     Route: 048
     Dates: start: 20150924
  2. TAMSULOSIN [Concomitant]
     Active Substance: TAMSULOSIN
     Indication: TRANSITIONAL CELL CARCINOMA
     Route: 048
     Dates: start: 20151204
  3. SENOKOT [Concomitant]
     Active Substance: SENNOSIDES
     Indication: TRANSITIONAL CELL CARCINOMA
     Route: 048
     Dates: start: 20151206, end: 20151206
  4. DITROPAN [Concomitant]
     Active Substance: OXYBUTYNIN CHLORIDE
     Indication: TRANSITIONAL CELL CARCINOMA
     Route: 048
     Dates: start: 20151205, end: 20151205
  5. EXCEDRIN [Concomitant]
     Active Substance: ACETAMINOPHEN\ASPIRIN\CAFFEINE
     Indication: HEADACHE
     Route: 048
     Dates: start: 1990
  6. EXCEDRIN [Concomitant]
     Active Substance: ACETAMINOPHEN\ASPIRIN\CAFFEINE
     Indication: PAIN
  7. TYLENOL WITH CODEINE [Concomitant]
     Active Substance: ACETAMINOPHEN\CODEINE PHOSPHATE
     Indication: TRANSITIONAL CELL CARCINOMA
     Route: 048
     Dates: start: 20151204, end: 20151210
  8. LISINOPRIL + HIDROCLOROTIAZIDA [Concomitant]
     Active Substance: HYDROCHLOROTHIAZIDE\LISINOPRIL
     Indication: HYPERTENSION
     Route: 048
     Dates: start: 20131227
  9. LOPRESSOR [Concomitant]
     Active Substance: METOPROLOL TARTRATE
     Indication: HYPERTENSION
     Route: 048
     Dates: start: 20131227
  10. CIPROFLOXACIN. [Concomitant]
     Active Substance: CIPROFLOXACIN
     Indication: CYSTOSCOPY
     Route: 048
     Dates: start: 20151117, end: 20151117
  11. GENTAMICIN. [Concomitant]
     Active Substance: GENTAMICIN
     Indication: TRANSITIONAL CELL CARCINOMA
     Route: 030
     Dates: start: 20151211, end: 20151211

REACTIONS (2)
  - Blood urine present [Unknown]
  - Transitional cell carcinoma [Unknown]

NARRATIVE: CASE EVENT DATE: 20150925
